FAERS Safety Report 10390530 (Version 2)
Quarter: 2014Q3

REPORT INFORMATION
  Report Type: Spontaneous
  Country: IT (occurrence: None)
  Receive Date: 20140814
  Receipt Date: 20140827
  Transmission Date: 20150326
  Serious: Yes (Hospitalization, Other)
  Sender: FDA-Public Use
  Company Number: AUR-APL-2014-08367

PATIENT
  Age: 32 Year
  Sex: Female

DRUGS (3)
  1. SERTRALINE [Suspect]
     Active Substance: SERTRALINE HYDROCHLORIDE
     Indication: PRODUCT USED FOR UNKNOWN INDICATION
     Dosage: 300 MG 30 DF, TOTAL, ORAL
     Route: 048
     Dates: start: 20140714, end: 20140714
  2. DIAZEPAM. [Suspect]
     Active Substance: DIAZEPAM
     Indication: PRODUCT USED FOR UNKNOWN INDICATION
     Dosage: 5 MG/ML. 20 DF, TOTAL, ORAL
     Dates: start: 20140714, end: 20140714
  3. TRIAZOLAM. [Suspect]
     Active Substance: TRIAZOLAM
     Indication: PRODUCT USED FOR UNKNOWN INDICATION
     Dosage: 250 MCG, 20 DF, TOTAL, ORAL
     Route: 048
     Dates: start: 20140714, end: 20140714

REACTIONS (6)
  - Drug abuse [None]
  - Intentional self-injury [None]
  - Bundle branch block right [None]
  - Depression [None]
  - Agitation [None]
  - Bradycardia [None]

NARRATIVE: CASE EVENT DATE: 20140714
